FAERS Safety Report 6857455-2 (Version None)
Quarter: 2010Q3

REPORT INFORMATION
  Report Type: 
  Country: None (occurrence: None)
  Receive Date: 20100719
  Receipt Date: 20080123
  Transmission Date: 20110219
  Serious: No
  Sender: FDA-Public Use
  Company Number: US-PFIZER INC-2008009039

PATIENT
  Sex: Male
  Weight: 72.1 kg

DRUGS (2)
  1. CHANTIX [Suspect]
     Indication: SMOKING CESSATION THERAPY
     Dates: start: 20070701, end: 20070701
  2. BUPRENORPHINE HCL AND NALOXONE HCL [Concomitant]
     Indication: BACK INJURY

REACTIONS (1)
  - NAUSEA [None]
